FAERS Safety Report 7345637-5 (Version None)
Quarter: 2011Q1

REPORT INFORMATION
  Report Type: 
  Country: None (occurrence: None)
  Receive Date: 20110310
  Receipt Date: 20110302
  Transmission Date: 20110831
  Serious: Yes (Other)
  Sender: FDA-Public Use
  Company Number: A0917236A

PATIENT
  Sex: Male

DRUGS (1)
  1. BUPROPION SR [Suspect]
     Dosage: 150MG UNKNOWN
     Route: 065
     Dates: start: 20110101

REACTIONS (3)
  - MOOD ALTERED [None]
  - MALAISE [None]
  - AGGRESSION [None]
